FAERS Safety Report 9917834 (Version 3)
Quarter: 2014Q2

REPORT INFORMATION
  Report Type: Report from Study
  Country: US (occurrence: US)
  Receive Date: 20140221
  Receipt Date: 20140627
  Transmission Date: 20141212
  Serious: Yes (Hospitalization)
  Sender: FDA-Public Use
  Company Number: US-ABBVIE-14P-163-1203295-00

PATIENT
  Age: 56 Year
  Sex: Female
  Weight: 70.37 kg

DRUGS (27)
  1. HUMIRA [Suspect]
     Indication: RHEUMATOID ARTHRITIS
     Route: 058
     Dates: start: 20120925, end: 201302
  2. HUMIRA [Suspect]
     Indication: CROHN^S DISEASE
     Route: 058
     Dates: start: 201308, end: 201401
  3. HUMIRA [Suspect]
     Route: 058
     Dates: start: 20140311, end: 20140311
  4. HUMIRA [Suspect]
     Route: 058
  5. HUMIRA [Suspect]
     Route: 058
  6. EFFEXOR [Concomitant]
     Indication: DEPRESSION
  7. AMLODIPINE [Concomitant]
     Indication: HYPERTENSION
  8. PREDNISOLONE [Concomitant]
     Indication: CROHN^S DISEASE
  9. METHOTREXATE [Concomitant]
     Indication: CROHN^S DISEASE
     Dosage: 6 TABLETS WEEKLY
  10. METHOTREXATE [Concomitant]
     Indication: RHEUMATOID ARTHRITIS
  11. ZYRTEC [Concomitant]
     Indication: HYPERSENSITIVITY
  12. FOLIC ACID [Concomitant]
     Indication: VITAMIN SUPPLEMENTATION
     Dosage: DAILY
  13. PROBIOTIC [Concomitant]
     Indication: DYSPEPSIA
     Dosage: DAILY
  14. LACTAID [Concomitant]
     Indication: DYSPEPSIA
     Dosage: DAILY
  15. PRILOSEC [Concomitant]
     Indication: GASTROOESOPHAGEAL REFLUX DISEASE
  16. PRILOSEC [Concomitant]
     Indication: NAUSEA
  17. PRILOSEC [Concomitant]
     Indication: CROHN^S DISEASE
  18. WELCHOL [Concomitant]
     Indication: DIARRHOEA
     Dosage: 3 PILLS IN AM, 3 PILLS IN PM
  19. CYCLOBENZAPRINE [Concomitant]
     Indication: MUSCLE SPASMS
     Dosage: AT NIGHT TIME
  20. MELATONIN [Concomitant]
     Indication: INSOMNIA
     Dosage: AT NIGHT TIME
  21. MULTIVITAMIN [Concomitant]
     Indication: VITAMIN SUPPLEMENTATION
  22. VITAMIN B12 [Concomitant]
     Indication: VITAMIN SUPPLEMENTATION
  23. VITAMIN D3 [Concomitant]
     Indication: VITAMIN SUPPLEMENTATION
  24. FUROSEMIDE [Concomitant]
     Indication: OEDEMA
  25. VENLAFAXINE [Concomitant]
     Indication: DEPRESSION
  26. TRAMADOL [Concomitant]
     Indication: PRODUCT USED FOR UNKNOWN INDICATION
     Dosage: 1 TO 3 TIMES PER DAY AS NEEDED
  27. OXYCODONE [Concomitant]
     Indication: PRODUCT USED FOR UNKNOWN INDICATION
     Dosage: 5/325 MG 3 TIMES PER DAY AS NEEDED

REACTIONS (16)
  - Ileal stenosis [Recovered/Resolved]
  - Abdominal pain [Recovered/Resolved]
  - Nausea [Recovered/Resolved]
  - Vomiting [Recovered/Resolved]
  - Cholelithiasis [Recovered/Resolved]
  - Crohn^s disease [Recovered/Resolved]
  - Crohn^s disease [Recovered/Resolved]
  - Crohn^s disease [Recovered/Resolved]
  - Crohn^s disease [Recovered/Resolved]
  - Crohn^s disease [Recovered/Resolved]
  - Crohn^s disease [Recovered/Resolved]
  - Diarrhoea [Recovering/Resolving]
  - Arthralgia [Not Recovered/Not Resolved]
  - Malaise [Recovering/Resolving]
  - Feeling abnormal [Recovering/Resolving]
  - Pain [Recovering/Resolving]
